FAERS Safety Report 5136082-1 (Version None)
Quarter: 2006Q4

REPORT INFORMATION
  Report Type: 
  Country: None (occurrence: None)
  Receive Date: 20061027
  Receipt Date: 20061011
  Transmission Date: 20070319
  Serious: Yes (Other)
  Sender: FDA-Public Use
  Company Number: 2006UW19771

PATIENT
  Age: 71 Year
  Sex: Female

DRUGS (8)
  1. CRESTOR [Suspect]
     Route: 048
     Dates: start: 20060501
  2. CORGARD [Concomitant]
  3. UNIRETIC [Concomitant]
  4. LEXAPRO [Concomitant]
  5. LIPOIC ACID [Concomitant]
  6. FLONASE [Concomitant]
  7. ALTRAM [Concomitant]
  8. AMBIEN [Concomitant]

REACTIONS (6)
  - ABDOMINAL PAIN [None]
  - ALANINE AMINOTRANSFERASE INCREASED [None]
  - ASPARTATE AMINOTRANSFERASE INCREASED [None]
  - FEELING ABNORMAL [None]
  - MUSCLE DISORDER [None]
  - NAUSEA [None]
